FAERS Safety Report 7707479-8 (Version None)
Quarter: 2011Q3

REPORT INFORMATION
  Report Type: 
  Country: None (occurrence: None)
  Receive Date: 20110824
  Receipt Date: 20110817
  Transmission Date: 20111222
  Serious: Yes (Hospitalization)
  Sender: FDA-Public Use
  Company Number: US-B.I. PHARMACEUTICALS,INC./RIDGEFIELD-2011-DE-04643GD

PATIENT
  Age: 86 Year
  Sex: Male

DRUGS (1)
  1. AGGRENOX [Suspect]
     Indication: CARDIOVASCULAR EVENT PROPHYLAXIS
     Dosage: 1 CAPSULE BID
     Route: 048

REACTIONS (5)
  - CONSTIPATION [None]
  - OESOPHAGITIS [None]
  - ACUTE ABDOMEN [None]
  - HAEMATEMESIS [None]
  - VOMITING [None]
